FAERS Safety Report 6763848-4 (Version None)
Quarter: 2010Q2

REPORT INFORMATION
  Report Type: 
  Country: None (occurrence: None)
  Receive Date: 20100608
  Receipt Date: 20100527
  Transmission Date: 20101027
  Serious: Yes (Other)
  Sender: FDA-Public Use
  Company Number: 2010SP001457

PATIENT
  Age: 29 Year
  Sex: Female

DRUGS (1)
  1. OMNARIS [Suspect]
     Indication: MULTIPLE ALLERGIES
     Dosage: 100 MG 1X NASAL
     Route: 045
     Dates: start: 20100523, end: 20100523

REACTIONS (4)
  - DYSGEUSIA [None]
  - DYSPNOEA [None]
  - PANIC ATTACK [None]
  - UNEVALUABLE EVENT [None]
